FAERS Safety Report 19572211 (Version 2)
Quarter: 2021Q3

REPORT INFORMATION
  Report Type: Report from Study
  Country: None (occurrence: CA)
  Receive Date: 20210715
  Receipt Date: 20210820
  Transmission Date: 20211014
  Serious: No
  Sender: FDA-Public Use
  Company Number: CA-ABBVIE-21K-028-3991708-00

PATIENT
  Sex: Female
  Weight: 70.3 kg

DRUGS (5)
  1. COVID?19 VACCINE [Concomitant]
     Indication: COVID-19 IMMUNISATION
     Route: 030
     Dates: start: 202105, end: 202105
  2. HUMIRA [Suspect]
     Active Substance: ADALIMUMAB
     Indication: RHEUMATOID ARTHRITIS
     Route: 058
     Dates: start: 20200930, end: 2021
  3. HUMIRA [Suspect]
     Active Substance: ADALIMUMAB
     Indication: RHEUMATOID ARTHRITIS
     Route: 058
     Dates: start: 2021, end: 2021
  4. HUMIRA [Suspect]
     Active Substance: ADALIMUMAB
     Route: 058
     Dates: start: 2021
  5. COVID?19 VACCINE [Concomitant]
     Route: 030
     Dates: start: 202106, end: 202106

REACTIONS (10)
  - Device difficult to use [Unknown]
  - Electrocardiogram PR prolongation [Unknown]
  - Neck pain [Recovered/Resolved]
  - QRS axis abnormal [Unknown]
  - Bundle branch block left [Unknown]
  - Muscle atrophy [Not Recovered/Not Resolved]
  - Arthralgia [Recovered/Resolved]
  - Pain in extremity [Recovered/Resolved]
  - Neuropathy peripheral [Not Recovered/Not Resolved]
  - Sinus arrhythmia [Unknown]

NARRATIVE: CASE EVENT DATE: 2021
